FAERS Safety Report 4686818-9 (Version None)
Quarter: 2005Q2

REPORT INFORMATION
  Report Type: 
  Country: None (occurrence: None)
  Receive Date: 20050608
  Receipt Date: 20050531
  Transmission Date: 20051028
  Serious: Yes (Hospitalization)
  Sender: FDA-Public Use
  Company Number: WAES 0505USA01702

PATIENT
  Age: 78 Year
  Sex: Female
  Weight: 90.7194 kg

DRUGS (10)
  1. VIOXX [Suspect]
     Indication: ARTHRITIS
     Dosage: PO
     Route: 048
     Dates: start: 20031110, end: 20050201
  2. NOLVADEX [Suspect]
     Indication: BREAST CANCER
     Dosage: 20 MG/DAILY/PO
     Route: 048
     Dates: start: 20030613
  3. ASACOL [Concomitant]
  4. AZMACORT [Concomitant]
  5. DIOVAN [Concomitant]
  6. PRILOSEC [Concomitant]
  7. SINGULAIR [Concomitant]
  8. XALATAN [Concomitant]
  9. ALBUTEROL [Concomitant]
  10. HYDROCHLOROTHIAZIDE [Concomitant]

REACTIONS (2)
  - CEREBRAL ISCHAEMIA [None]
  - HEADACHE [None]
